FAERS Safety Report 22197311 (Version 1)
Quarter: 2023Q2

REPORT INFORMATION
  Report Type: Spontaneous
  Country: US (occurrence: None)
  Receive Date: 20230411
  Receipt Date: 20230411
  Transmission Date: 20230722
  Serious: Yes (Other)
  Sender: FDA-Public Use
  Company Number: 2023A078873

PATIENT
  Sex: Male
  Weight: 93.4 kg

DRUGS (2)
  1. BYDUREON BCISE [Suspect]
     Active Substance: EXENATIDE
     Indication: Diabetes mellitus
     Route: 058
     Dates: start: 20210406
  2. BYDUREON [Suspect]
     Active Substance: EXENATIDE
     Indication: Diabetes mellitus
     Dosage: UNKNOWN
     Route: 058
     Dates: start: 20180604

REACTIONS (7)
  - Transient ischaemic attack [Unknown]
  - Cataract [Unknown]
  - Visual impairment [Unknown]
  - Nervousness [Unknown]
  - Mental impairment [Unknown]
  - Nodule [Unknown]
  - Incorrect dose administered by device [Unknown]

NARRATIVE: CASE EVENT DATE: 20220101
